FAERS Safety Report 11222407 (Version 1)
Quarter: 2015Q2

REPORT INFORMATION
  Report Type: Spontaneous
  Country: TR (occurrence: TR)
  Receive Date: 20150626
  Receipt Date: 20150626
  Transmission Date: 20150821
  Serious: Yes (Hospitalization, Other)
  Sender: FDA-Public Use
  Company Number: PHHY2015TR053654

PATIENT
  Age: 33 Year
  Sex: Female

DRUGS (2)
  1. CLOMIPRAMINE [Suspect]
     Active Substance: CLOMIPRAMINE
     Indication: OBSESSIVE-COMPULSIVE DISORDER
     Route: 065
  2. CLOMIPRAMINE [Suspect]
     Active Substance: CLOMIPRAMINE
     Indication: MAJOR DEPRESSION

REACTIONS (5)
  - Female sexual arousal disorder [Recovering/Resolving]
  - Mania [Unknown]
  - Urinary incontinence [Recovered/Resolved]
  - Withdrawal syndrome [Unknown]
  - Restless legs syndrome [Unknown]
